FAERS Safety Report 5154285-7 (Version None)
Quarter: 2006Q4

REPORT INFORMATION
  Report Type: 
  Country: None (occurrence: None)
  Receive Date: 20061114
  Receipt Date: 20061106
  Transmission Date: 20070319
  Serious: Yes (Life-Threatening)
  Sender: FDA-Public Use
  Company Number: GXKR2006GB07118

PATIENT
  Age: 65 Year
  Sex: Male

DRUGS (2)
  1. METFORMIN (NGX) (METFORMIN) [Suspect]
     Indication: DIABETES MELLITUS NON-INSULIN-DEPENDENT
     Dosage: ORAL
     Route: 048
  2. STATIN [Concomitant]

REACTIONS (7)
  - ANAPHYLACTIC REACTION [None]
  - ANGIONEUROTIC OEDEMA [None]
  - ASTHMA [None]
  - CHOKING SENSATION [None]
  - COUGH [None]
  - RASH [None]
  - WHEEZING [None]
